FAERS Safety Report 8600028-1 (Version None)
Quarter: 2012Q3

REPORT INFORMATION
  Report Type: 
  Country: None (occurrence: None)
  Receive Date: 20120816
  Receipt Date: 20120806
  Transmission Date: 20120928
  Serious: Yes (Other)
  Sender: FDA-Public Use
  Company Number: CHPA2012US016127

PATIENT
  Age: 68 Year
  Sex: Female

DRUGS (2)
  1. EXCEDRIN (MIGRAINE) [Suspect]
     Dosage: 1 1/2DF
     Route: 048
     Dates: start: 20120716, end: 20120716
  2. EXCEDRIN (MIGRAINE) [Suspect]
     Indication: MIGRAINE
     Dosage: 2 TO 4 DF, UNK
     Route: 048
     Dates: end: 20120716

REACTIONS (6)
  - UNDERDOSE [None]
  - ARTERIAL OCCLUSIVE DISEASE [None]
  - MIGRAINE [None]
  - OVERDOSE [None]
  - HYPERTENSION [None]
  - THERAPEUTIC RESPONSE DECREASED [None]
